FAERS Safety Report 18981455 (Version 1)
Quarter: 2021Q1

REPORT INFORMATION
  Report Type: Other
  Country: US (occurrence: US)
  Receive Date: 20210308
  Receipt Date: 20210308
  Transmission Date: 20210420
  Serious: Yes (Other)
  Sender: FDA-Public Use
  Company Number: US-ROCHE-2732473

PATIENT
  Sex: Female

DRUGS (2)
  1. ACTEMRA [Suspect]
     Active Substance: TOCILIZUMAB
  2. ACTEMRA [Suspect]
     Active Substance: TOCILIZUMAB
     Indication: GIANT CELL ARTERITIS
     Route: 058

REACTIONS (6)
  - Lower limb fracture [Unknown]
  - Accident [Unknown]
  - Aortic aneurysm [Unknown]
  - Deep vein thrombosis [Unknown]
  - Amnesia [Unknown]
  - COVID-19 [Unknown]
